FAERS Safety Report 7403428-0 (Version None)
Quarter: 2011Q2

REPORT INFORMATION
  Report Type: 
  Country: None (occurrence: None)
  Receive Date: 20110408
  Receipt Date: 20110331
  Transmission Date: 20111010
  Serious: Yes (Hospitalization)
  Sender: FDA-Public Use
  Company Number: A0919681A

PATIENT
  Age: 61 Year
  Sex: Male

DRUGS (14)
  1. LANTUS [Concomitant]
     Indication: DIABETES MELLITUS
     Route: 058
  2. CLONIDINE [Concomitant]
     Indication: ANXIETY
     Route: 048
     Dates: start: 20000101
  3. DEXAMETHASONE [Concomitant]
     Route: 061
  4. SIMVASTATIN [Concomitant]
     Indication: BLOOD CHOLESTEROL INCREASED
     Route: 048
     Dates: start: 20030101
  5. AMLODIPINE [Concomitant]
     Indication: HYPERTENSION
     Dosage: 10MG PER DAY
     Route: 048
     Dates: start: 20030101, end: 20110206
  6. ZOLOFT [Concomitant]
     Indication: DEPRESSION
     Dosage: 50MG PER DAY
     Route: 048
     Dates: start: 20000101
  7. HYDROCORTISONE + LIDOCAINE [Concomitant]
  8. FAMVIR [Concomitant]
     Dosage: 250MG THREE TIMES PER DAY
     Dates: start: 20110223
  9. PAZOPANIB [Suspect]
     Indication: METASTATIC RENAL CELL CARCINOMA
     Dosage: 800MG PER DAY
     Route: 048
     Dates: start: 20110224
  10. UNKNOWN [Concomitant]
     Indication: BLOOD CHOLESTEROL INCREASED
     Dates: start: 20100701
  11. LOTENSIN [Concomitant]
     Indication: HYPERTENSION
     Dosage: 40MG PER DAY
     Route: 048
     Dates: start: 20100101
  12. FUROSEMIDE [Concomitant]
     Indication: HYPERTENSION
     Dosage: 20MG PER DAY
     Route: 048
     Dates: start: 20101009
  13. ACTOS [Concomitant]
     Indication: DIABETES MELLITUS
     Dosage: 45MG AT NIGHT
     Route: 048
  14. VICODIN [Concomitant]
     Indication: PAIN
     Route: 048
     Dates: start: 20100401

REACTIONS (1)
  - DEHYDRATION [None]
